FAERS Safety Report 9400206 (Version 1)
Quarter: 2013Q1

REPORT INFORMATION
  Report Type: Spontaneous
  Country: US (occurrence: None)
  Receive Date: 20130326
  Receipt Date: 20130326
  Transmission Date: 20140127
  Serious: Yes (Hospitalization)
  Sender: FDA-Public Use
  Company Number: 2012US000879

PATIENT
  Age: 77 Year
  Sex: Female
  Weight: 71.4 kg

DRUGS (16)
  1. PONATINIB (AP24534) TABLET [Suspect]
     Indication: CHROMOSOME ANALYSIS ABNORMAL
     Route: 048
     Dates: start: 20120630
  2. PONATINIB (AP24534) TABLET [Suspect]
     Indication: CHRONIC MYELOID LEUKAEMIA
     Route: 048
     Dates: start: 20120630
  3. AMLODIPINE (AMLODIPINE) [Concomitant]
  4. FERROUS SULFATE (FERROUS SULFATE) [Concomitant]
  5. FUROSEMIDE (FUROSEMIDE) [Concomitant]
  6. ISOSORBIDE MONONITRATE (ISOSORBIDE MOONITRATE) [Concomitant]
  7. LEVOTHROID (LEVOTHYROXINE SODIUM) [Concomitant]
  8. METOPROLOL SUCCINATE (METOPROLOL SUCCINATE) [Concomitant]
  9. POTASSIUM CHLORIDE (POTASSIUM CHLORIDE) [Concomitant]
  10. RANOLAZINE (RANOLAZINE) [Concomitant]
  11. ROSUVASTATIN (ROSUVASTATIN) [Concomitant]
  12. NITROGLYCERIN (NITROGLYCERIN) [Concomitant]
  13. TRAMADOL (TRAMADOL HYDROCHLORIDE) [Concomitant]
  14. SERTRALINE HCL (SERTRALINE HYDROCHLORIDE) [Concomitant]
  15. SENNOSIDES A+B (SENNOSIDES A+B) [Concomitant]
  16. CLOPIDOGREL BISULFATE (CLOPIDOGREL BISULFATE) [Concomitant]

REACTIONS (12)
  - Cholelithiasis [None]
  - Dehydration [None]
  - Diarrhoea [None]
  - Pancreatitis [None]
  - Dizziness [None]
  - Chills [None]
  - Cardiac murmur [None]
  - Blood pressure increased [None]
  - Pleural effusion [None]
  - Haemoglobin decreased [None]
  - Haematocrit decreased [None]
  - Blood lactic acid increased [None]
